FAERS Safety Report 8979346 (Version 1)
Quarter: 2012Q4

REPORT INFORMATION
  Report Type: 
  Country: US (occurrence: US)
  Receive Date: 20121221
  Receipt Date: 20121221
  Transmission Date: 20130627
  Serious: Yes (Hospitalization)
  Sender: FDA-Public Use
  Company Number: US-GILEAD-2012-0066698

PATIENT
  Sex: Male

DRUGS (4)
  1. LETAIRIS [Suspect]
     Indication: PRODUCT USED FOR UNKNOWN INDICATION
     Dosage: 10 mg, QD
     Route: 048
     Dates: start: 20110429
  2. ALBUTEROL                          /00139501/ [Concomitant]
  3. PREDNISONE [Concomitant]
  4. LASIX                              /00032601/ [Concomitant]

REACTIONS (2)
  - Cardiac failure chronic [Unknown]
  - Pulmonary fibrosis [Unknown]
